FAERS Safety Report 19757107 (Version 1)
Quarter: 2021Q3

REPORT INFORMATION
  Report Type: Spontaneous
  Country: US (occurrence: US)
  Receive Date: 20210828
  Receipt Date: 20210828
  Transmission Date: 20211014
  Serious: No
  Sender: FDA-Public Use
  Company Number: NVSC2021US194748

PATIENT
  Sex: Male

DRUGS (2)
  1. TAFINLAR [Suspect]
     Active Substance: DABRAFENIB MESYLATE
     Indication: HYPOPITUITARISM
     Dosage: 100 MG, Q12H
     Route: 048
     Dates: start: 20191023
  2. TAFINLAR [Suspect]
     Active Substance: DABRAFENIB MESYLATE
     Indication: LANGERHANS^ CELL HISTIOCYTOSIS

REACTIONS (1)
  - Weight increased [Unknown]
